FAERS Safety Report 9239727 (Version 2)
Quarter: 2013Q2

REPORT INFORMATION
  Report Type: Spontaneous
  Country: US (occurrence: US)
  Receive Date: 20130418
  Receipt Date: 20130513
  Transmission Date: 20140414
  Serious: No
  Sender: FDA-Public Use
  Company Number: US-PFIZER INC-2013121882

PATIENT
  Age: 49 Year
  Sex: Female
  Weight: 78.01 kg

DRUGS (5)
  1. LYRICA [Suspect]
     Indication: NEURALGIA
     Dosage: 150 MG, 4X/DAY
     Route: 048
     Dates: start: 2010
  2. EFFEXOR XR [Suspect]
     Indication: DEPRESSION
     Dosage: 75 MG, 3X/DAY
     Route: 048
  3. MORPHINE [Concomitant]
     Dosage: 300 MG, 3X/DAY
     Route: 048
  4. OXYCODONE [Concomitant]
     Dosage: 30 MG, 3X/DAY
     Route: 048
  5. SOMA [Concomitant]
     Dosage: 350 MG, 3X/DAY

REACTIONS (1)
  - Pain [Recovering/Resolving]
